FAERS Safety Report 8989041 (Version 1)
Quarter: 2012Q4

REPORT INFORMATION
  Report Type: Spontaneous
  Country: US (occurrence: None)
  Receive Date: 20121224
  Receipt Date: 20121224
  Transmission Date: 20130627
  Serious: No
  Sender: FDA-Public Use
  Company Number: None

PATIENT
  Sex: Female

DRUGS (4)
  1. BENLYSTA [Suspect]
  2. PREDNISONE [Suspect]
  3. PLAQUENIL [Suspect]
  4. MOBIC [Suspect]

REACTIONS (6)
  - Pyrexia [None]
  - Depression [None]
  - Pain in extremity [None]
  - Headache [None]
  - Fatigue [None]
  - Diabetes mellitus [None]
